FAERS Safety Report 7313407-X (Version None)
Quarter: 2011Q1

REPORT INFORMATION
  Report Type: 
  Country: None (occurrence: None)
  Receive Date: 20110225
  Receipt Date: 20110215
  Transmission Date: 20110831
  Serious: Yes (Other)
  Sender: FDA-Public Use
  Company Number: US-PFIZER INC-2010153665

PATIENT
  Sex: Female
  Weight: 102 kg

DRUGS (5)
  1. LISINOPRIL [Concomitant]
     Dosage: UNK
  2. ATENOLOL [Concomitant]
     Dosage: UNK
  3. GABAPENTIN [Suspect]
     Indication: DIABETIC NEUROPATHY
     Dosage: 600 MG, 2X/DAY AND 1200 MG AT BEDTIME
     Route: 048
     Dates: start: 20080101, end: 20080801
  4. METFORMIN [Concomitant]
     Dosage: UNK
  5. ZOCOR [Concomitant]
     Dosage: UNK

REACTIONS (3)
  - SOMNOLENCE [None]
  - DRUG INEFFECTIVE [None]
  - PAIN IN EXTREMITY [None]
